FAERS Safety Report 11683373 (Version 1)
Quarter: 2015Q4

REPORT INFORMATION
  Report Type: Spontaneous
  Country: US (occurrence: US)
  Receive Date: 20151029
  Receipt Date: 20151029
  Transmission Date: 20160304
  Serious: No
  Sender: FDA-Public Use
  Company Number: US-BIOMARINAP-US-2015-107806

PATIENT
  Sex: Male
  Weight: 75 kg

DRUGS (2)
  1. VIMIZIM [Suspect]
     Active Substance: ELOSULFASE ALFA
     Indication: MUCOPOLYSACCHARIDOSIS IV
     Dosage: UNK, QW
     Route: 042
     Dates: start: 20141218
  2. FENTANYL                           /00174602/ [Concomitant]
     Active Substance: FENTANYL
     Indication: PRODUCT USED FOR UNKNOWN INDICATION
     Route: 062

REACTIONS (7)
  - Emotional disorder [Unknown]
  - Pain [Unknown]
  - Hormone level abnormal [Unknown]
  - Fall [Unknown]
  - Clumsiness [Unknown]
  - Feeling abnormal [Unknown]
  - Hyperhidrosis [Unknown]
